FAERS Safety Report 16794683 (Version 1)
Quarter: 2019Q3

REPORT INFORMATION
  Report Type: Spontaneous
  Country: US (occurrence: US)
  Receive Date: 20190911
  Receipt Date: 20190911
  Transmission Date: 20191005
  Serious: Yes (Other)
  Sender: FDA-Public Use
  Company Number: US-ELI_LILLY_AND_COMPANY-US201909001101

PATIENT
  Sex: Male

DRUGS (3)
  1. CIALIS [Suspect]
     Active Substance: TADALAFIL
     Indication: ERECTILE DYSFUNCTION
     Dosage: UNK, MONTHLY (1/M)
     Route: 065
     Dates: start: 2009, end: 2015
  2. VIAGRA [Suspect]
     Active Substance: SILDENAFIL CITRATE
     Indication: ERECTILE DYSFUNCTION
     Dosage: UNK UNK, WEEKLY (1/W)
     Route: 065
     Dates: start: 2004, end: 2009
  3. FLOMAX TAMSULOSIN HYDROCHLORIDE [Concomitant]
     Indication: ERECTILE DYSFUNCTION
     Dosage: UNK, PRN
     Route: 065
     Dates: start: 2009

REACTIONS (1)
  - Malignant melanoma [Not Recovered/Not Resolved]

NARRATIVE: CASE EVENT DATE: 2010
